FAERS Safety Report 4764475-0 (Version None)
Quarter: 2005Q3

REPORT INFORMATION
  Report Type: 
  Country: None (occurrence: None)
  Receive Date: 20050906
  Receipt Date: 20050825
  Transmission Date: 20060218
  Serious: Yes (Hospitalization)
  Sender: FDA-Public Use
  Company Number: CIP05002006

PATIENT
  Age: 84 Year
  Sex: Female

DRUGS (2)
  1. ACTONEL [Suspect]
     Indication: OSTEOPOROSIS
     Dosage: 35 MG ONCE WEEKLY, ORAL
     Route: 048
     Dates: start: 20040101, end: 20050101
  2. SYNTHROID [Concomitant]

REACTIONS (9)
  - ASTHENIA [None]
  - BILIARY TRACT DISORDER [None]
  - BLOOD ALKALINE PHOSPHATASE INCREASED [None]
  - BLOOD AMYLASE INCREASED [None]
  - GENERAL NUTRITION DISORDER [None]
  - JAUNDICE [None]
  - LIPASE INCREASED [None]
  - MALAISE [None]
  - WEIGHT DECREASED [None]
